FAERS Safety Report 8721100 (Version 3)
Quarter: 2012Q4

REPORT INFORMATION
  Report Type: 
  Country: US (occurrence: US)
  Receive Date: 20120813
  Receipt Date: 20121008
  Transmission Date: 20130627
  Serious: Yes (Other)
  Sender: FDA-Public Use
  Company Number: US-PFIZER INC-2012194581

PATIENT

DRUGS (1)
  1. LIPITOR [Suspect]
     Dosage: 10 mg, UNK

REACTIONS (3)
  - Diabetes mellitus [Unknown]
  - Malaise [Unknown]
  - Drug ineffective [Unknown]
